FAERS Safety Report 12115554 (Version 2)
Quarter: 2016Q2

REPORT INFORMATION
  Report Type: Spontaneous
  Country: FR (occurrence: FR)
  Receive Date: 20160225
  Receipt Date: 20160401
  Transmission Date: 20160815
  Serious: Yes (Hospitalization)
  Sender: FDA-Public Use
  Company Number: FR-NOVOPROD-481193

PATIENT
  Age: 74 Year
  Sex: Male

DRUGS (14)
  1. ZOLPIDEM [Concomitant]
     Active Substance: ZOLPIDEM\ZOLPIDEM TARTRATE
     Dosage: 10 MG, QD
     Route: 048
  2. LANTUS [Suspect]
     Active Substance: INSULIN GLARGINE
     Indication: TYPE 2 DIABETES MELLITUS
     Dosage: 18 U, QD
     Route: 058
     Dates: start: 20160108
  3. AVODART [Concomitant]
     Active Substance: DUTASTERIDE
     Indication: POLLAKIURIA
     Dosage: 0.5 MG, QD
     Route: 048
  4. KALEORID [Concomitant]
     Active Substance: POTASSIUM CHLORIDE
     Dosage: 1000 MG, BID
     Route: 048
     Dates: start: 20160118, end: 20160121
  5. NOVORAPID [Suspect]
     Active Substance: INSULIN ASPART
     Indication: TYPE 2 DIABETES MELLITUS
     Dosage: 25 U, QD
     Route: 058
     Dates: start: 20160108
  6. LANTUS [Suspect]
     Active Substance: INSULIN GLARGINE
     Indication: DIABETES MELLITUS
  7. PREDNISOLONE. [Suspect]
     Active Substance: PREDNISOLONE
     Indication: IMMUNE THROMBOCYTOPENIC PURPURA
     Dosage: 80 MG, QD
     Route: 048
     Dates: start: 20160108
  8. OCTAGAM IMMUNE GLOBULIN (HUMAN) [Suspect]
     Active Substance: HUMAN IMMUNOGLOBULIN G
     Indication: IMMUNE THROMBOCYTOPENIC PURPURA
     Dosage: 80 MG, QW
     Route: 042
     Dates: start: 20160108, end: 20160113
  9. PERMIXON [Concomitant]
     Active Substance: SAW PALMETTO
     Indication: POLLAKIURIA
     Dosage: 160 MG, BID
     Route: 048
     Dates: start: 20151220
  10. CLOPIDOGREL [Concomitant]
     Active Substance: CLOPIDOGREL BISULFATE
     Dosage: 75 MG, QD
     Route: 065
  11. ESOMEPRAZOLE [Concomitant]
     Active Substance: ESOMEPRAZOLE
     Dosage: 20 MG, QD
     Route: 048
  12. NOVORAPID [Suspect]
     Active Substance: INSULIN ASPART
     Indication: DIABETES MELLITUS
  13. SIMVASTATINE [Concomitant]
     Active Substance: SIMVASTATIN
     Indication: HYPERCHOLESTEROLAEMIA
     Dosage: 40 MG, QD
     Route: 048
  14. METFORMINE [Concomitant]
     Active Substance: METFORMIN HYDROCHLORIDE
     Indication: TYPE 2 DIABETES MELLITUS
     Dosage: 500 MG, TID
     Route: 048

REACTIONS (5)
  - Hyperhidrosis [Recovered/Resolved]
  - Asthenia [Unknown]
  - Aphasia [Recovered/Resolved]
  - Malaise [Recovered/Resolved]
  - Loss of consciousness [Recovered/Resolved]

NARRATIVE: CASE EVENT DATE: 20160119
